FAERS Safety Report 23761933 (Version 1)
Quarter: 2024Q2

REPORT INFORMATION
  Report Type: Spontaneous
  Country: GB (occurrence: GB)
  Receive Date: 20240419
  Receipt Date: 20240419
  Transmission Date: 20240716
  Serious: Yes (Other)
  Sender: FDA-Public Use
  Company Number: None

PATIENT

DRUGS (1)
  1. METHOTREXATE [Suspect]
     Active Substance: METHOTREXATE
     Dates: start: 202306

REACTIONS (6)
  - Joint swelling [Recovering/Resolving]
  - Peripheral swelling [Recovering/Resolving]
  - Vitreous floaters [Not Recovered/Not Resolved]
  - Abnormal weight gain [Unknown]
  - White blood cell count decreased [Recovered/Resolved]
  - Fluid retention [Unknown]
